FAERS Safety Report 17826450 (Version 1)
Quarter: 2020Q2

REPORT INFORMATION
  Report Type: Spontaneous
  Country: NL (occurrence: NL)
  Receive Date: 20200527
  Receipt Date: 20200527
  Transmission Date: 20200714
  Serious: Yes (Death, Life-Threatening, Other)
  Sender: FDA-Public Use
  Company Number: NL-AUROBINDO-AUR-APL-2020-025553

PATIENT
  Sex: Female

DRUGS (5)
  1. SALBUTAMOL [Concomitant]
     Active Substance: ALBUTEROL
     Indication: PRODUCT USED FOR UNKNOWN INDICATION
     Dosage: VERNEVELVLOEISTOF, 1 MG/ML (MILLIGRAM PER MILLILITER)
     Route: 065
  2. NADROPARINE [Concomitant]
     Active Substance: NADROPARIN
     Indication: PRODUCT USED FOR UNKNOWN INDICATION
     Dosage: INJECTION LIQUID, 9500 IE/ML (EENHEDEN PER MILLILITER)
     Route: 065
  3. PIPERACILLIN AND TAZOBACTAM [Suspect]
     Active Substance: PIPERACILLIN SODIUM\TAZOBACTAM SODIUM
     Indication: PNEUMONIA
     Dosage: 1 DOSAGE FORM
     Route: 065
     Dates: start: 20200118, end: 20200122
  4. METFORMINE [Concomitant]
     Active Substance: METFORMIN HYDROCHLORIDE
     Indication: PRODUCT USED FOR UNKNOWN INDICATION
     Dosage: MODIFIED-RELEASE TABLET 500 MG
     Route: 065
  5. MORFINE [Concomitant]
     Active Substance: MORPHINE
     Indication: PRODUCT USED FOR UNKNOWN INDICATION
     Dosage: INJECTION LIQUID 10 MG/ML (MILLIGRAM PER MILLILITER)
     Route: 065

REACTIONS (1)
  - Acute kidney injury [Fatal]
